FAERS Safety Report 4638885-6 (Version None)
Quarter: 2005Q2

REPORT INFORMATION
  Report Type: 
  Country: None (occurrence: None)
  Receive Date: 20050418
  Receipt Date: 20050418
  Transmission Date: 20051028
  Serious: Yes (Other)
  Sender: FDA-Public Use
  Company Number: None

PATIENT
  Sex: Female

DRUGS (1)
  1. MEFLOQUINE [Suspect]
     Indication: MALARIA
     Dates: start: 20050314, end: 20050315

REACTIONS (2)
  - ABNORMAL BEHAVIOUR [None]
  - SLEEP TALKING [None]
